FAERS Safety Report 25315609 (Version 5)
Quarter: 2025Q3

REPORT INFORMATION
  Report Type: Report from Study
  Country: KR (occurrence: KR)
  Receive Date: 20250514
  Receipt Date: 20250714
  Transmission Date: 20251020
  Serious: Yes (Death, Life-Threatening, Hospitalization)
  Sender: JAZZ
  Company Number: KR-BR-2025-0083

PATIENT
  Age: 75 Year
  Sex: Male
  Weight: 54.1 kg

DRUGS (10)
  1. LURBINECTEDIN [Suspect]
     Active Substance: LURBINECTEDIN
     Indication: Product used for unknown indication
     Dosage: 2.6 MILLIGRAM PER SQUARE METER, Q3W
     Dates: start: 20240712, end: 20240712
  2. LURBINECTEDIN [Suspect]
     Active Substance: LURBINECTEDIN
     Dosage: 3.2 MILLIGRAM PER SQUARE METER, Q3W
     Dates: start: 20240805, end: 20240805
  3. LURBINECTEDIN [Suspect]
     Active Substance: LURBINECTEDIN
     Dosage: 2.6 MILLIGRAM PER SQUARE METER, Q3W
     Dates: start: 20240826, end: 20240826
  4. HYTRIN [Concomitant]
     Active Substance: TERAZOSIN HYDROCHLORIDE
     Indication: Hypertension
     Dosage: 1.5 DOSAGE FORM, QD
     Dates: start: 202312, end: 20240906
  5. YUHAN DEXAMETHASONE [Concomitant]
     Indication: Prophylaxis
     Dates: start: 20240712, end: 20240712
  6. YUHAN DEXAMETHASONE [Concomitant]
     Dates: start: 20240805, end: 20240805
  7. YUHAN DEXAMETHASONE [Concomitant]
     Dates: start: 20240826, end: 20240826
  8. KANITRON [Concomitant]
     Indication: Prophylaxis
     Dates: start: 20240712, end: 20240712
  9. KANITRON [Concomitant]
     Dates: start: 20240805, end: 20240805
  10. KANITRON [Concomitant]
     Dates: start: 20240826, end: 20240826

REACTIONS (1)
  - Neutropenic sepsis [Fatal]

NARRATIVE: CASE EVENT DATE: 20240906
